FAERS Safety Report 6971241-4 (Version None)
Quarter: 2010Q3

REPORT INFORMATION
  Report Type: 
  Country: None (occurrence: None)
  Receive Date: 20100908
  Receipt Date: 20100805
  Transmission Date: 20110219
  Serious: Yes (Other)
  Sender: FDA-Public Use
  Company Number: IT-BRISTOL-MYERS SQUIBB COMPANY-15148299

PATIENT
  Age: 61 Year
  Sex: Male

DRUGS (6)
  1. ERBITUX [Suspect]
     Indication: COLORECTAL CANCER
     Dosage: 8MAR TO 6APR10(28D) ONGOING
     Route: 042
     Dates: start: 20100308
  2. IRINOTECAN HCL [Suspect]
     Indication: COLORECTAL CANCER
     Route: 042
     Dates: start: 20100308
  3. TRIMETON [Concomitant]
  4. KYTRIL [Concomitant]
  5. URBASON [Concomitant]
  6. TAREG [Concomitant]

REACTIONS (1)
  - SUPRAVENTRICULAR TACHYCARDIA [None]
